FAERS Safety Report 20906542 (Version 1)
Quarter: 2022Q2

REPORT INFORMATION
  Report Type: Spontaneous
  Country: SK (occurrence: SK)
  Receive Date: 20220602
  Receipt Date: 20220602
  Transmission Date: 20220721
  Serious: Yes (Other)
  Sender: FDA-Public Use
  Company Number: SK-BAYER-2022A077284

PATIENT
  Age: 85 Year
  Sex: Male

DRUGS (3)
  1. EYLEA [Suspect]
     Active Substance: AFLIBERCEPT
     Indication: Product used for unknown indication
     Dosage: UNK, STRENGTH: 40 MG/ML, SOLUTION FOR INJECTION
     Dates: end: 20220412
  2. INSULIN NOS [Concomitant]
     Active Substance: INSULIN NOS
     Indication: Product used for unknown indication
  3. OTHER DRUGS USED IN DIABETES [Concomitant]
     Indication: Type 2 diabetes mellitus

REACTIONS (4)
  - Vertebrobasilar stroke [Unknown]
  - Atrial fibrillation [Unknown]
  - Retinal haemorrhage [Unknown]
  - Retinal pigment epithelial tear [Unknown]

NARRATIVE: CASE EVENT DATE: 20200521
